FAERS Safety Report 6694375-0 (Version None)
Quarter: 2010Q2

REPORT INFORMATION
  Report Type: 
  Country: None (occurrence: None)
  Receive Date: 20100423
  Receipt Date: 20100415
  Transmission Date: 20101027
  Serious: Yes (Other)
  Sender: FDA-Public Use
  Company Number: CN-PFIZER INC-2010042997

PATIENT
  Age: 57 Year
  Sex: Male

DRUGS (8)
  1. LIPITOR [Suspect]
     Indication: ARTERIOSCLEROSIS CORONARY ARTERY
     Dosage: 20 MG, 1X/DAY
     Route: 048
     Dates: end: 20100329
  2. ACETYLSALICYLIC ACID [Concomitant]
     Dosage: 100 MG, 1X/DAY
     Route: 048
  3. IRBESARTAN [Concomitant]
     Dosage: 150 MG, 1X/DAY
     Route: 048
  4. PLAVIX [Concomitant]
     Dosage: 75 MG, 1X/DAY
     Route: 048
  5. SPIRONOLACTONE [Concomitant]
     Dosage: 20 MG, 1X/DAY
     Route: 048
  6. BETALOC [Concomitant]
     Dosage: 1/4 TABLET, 2X/DAY
     Route: 048
  7. METFORMIN [Concomitant]
     Dosage: 0.25 G, 3X/DAY
     Route: 048
  8. ALGELDRATE [Concomitant]
     Dosage: 2 TABLETS, 1X/DAY
     Route: 048

REACTIONS (3)
  - ALANINE AMINOTRANSFERASE INCREASED [None]
  - ASPARTATE AMINOTRANSFERASE INCREASED [None]
  - BLOOD BILIRUBIN INCREASED [None]
